FAERS Safety Report 4665590-2 (Version None)
Quarter: 2005Q2

REPORT INFORMATION
  Report Type: 
  Country: None (occurrence: None)
  Receive Date: 20050517
  Receipt Date: 20050321
  Transmission Date: 20051028
  Serious: No
  Sender: FDA-Public Use
  Company Number: S05-USA-01529-01

PATIENT
  Age: 73 Year
  Sex: Male

DRUGS (12)
  1. NAMENDA [Suspect]
     Indication: DEMENTIA ALZHEIMER'S TYPE
     Dosage: 5 MG BID PO
     Route: 048
     Dates: start: 20050312, end: 20050315
  2. NAMENDA [Suspect]
     Indication: DEMENTIA ALZHEIMER'S TYPE
     Dosage: 5 MG QD PO
     Route: 048
     Dates: start: 20050305, end: 20050311
  3. GLYBURIDE [Concomitant]
  4. GLUCOPHAGE [Concomitant]
  5. FUROSEMIDE [Concomitant]
  6. POTASSIUM CHLORIDE [Concomitant]
  7. PRILOSEC [Concomitant]
  8. SIMVASTATIN [Concomitant]
  9. GEMFIBROZIL [Concomitant]
  10. COREG [Concomitant]
  11. LISINOPRIL [Concomitant]
  12. ECOTRIN (ACETYLSALICYLIC ACID) [Concomitant]

REACTIONS (3)
  - AGGRESSION [None]
  - HALLUCINATION [None]
  - HEARING IMPAIRED [None]
